FAERS Safety Report 7669775-2 (Version None)
Quarter: 2011Q3

REPORT INFORMATION
  Report Type: 
  Country: None (occurrence: None)
  Receive Date: 20110808
  Receipt Date: 20110804
  Transmission Date: 20111222
  Serious: Yes (Other)
  Sender: FDA-Public Use
  Company Number: US-JNJFOC-20110508264

PATIENT
  Sex: Female
  Weight: 63.5 kg

DRUGS (3)
  1. URELLE [Concomitant]
     Indication: CYSTITIS INTERSTITIAL
     Route: 048
     Dates: start: 19980101
  2. DITROPAN XL [Suspect]
     Indication: CYSTITIS INTERSTITIAL
     Route: 048
     Dates: start: 19980101
  3. YASMIN [Concomitant]
     Indication: CONTRACEPTION
     Route: 048

REACTIONS (2)
  - ACNE [None]
  - INTERVERTEBRAL DISC PROTRUSION [None]
